FAERS Safety Report 5845232-0 (Version None)
Quarter: 2008Q3

REPORT INFORMATION
  Report Type: 
  Country: None (occurrence: None)
  Receive Date: 20080814
  Receipt Date: 20080807
  Transmission Date: 20090109
  Serious: Yes (Death, Hospitalization)
  Sender: FDA-Public Use
  Company Number: B0528535A

PATIENT
  Age: 60 Year
  Sex: Female

DRUGS (6)
  1. PAXIL [Suspect]
     Indication: PANIC DISORDER
     Dosage: 20MG PER DAY
     Route: 048
     Dates: start: 20070511, end: 20070612
  2. BENZODIAZEPINE [Suspect]
     Indication: PANIC DISORDER
     Dosage: 10MG PER DAY
     Route: 048
     Dates: start: 20070602, end: 20070606
  3. ROHYPNOL [Concomitant]
     Indication: DRUG USE FOR UNKNOWN INDICATION
     Route: 065
  4. GASTER D [Concomitant]
     Indication: NAUSEA
     Dosage: 20MG PER DAY
     Route: 048
     Dates: start: 20070526, end: 20070612
  5. VEGETAMIN B [Concomitant]
     Indication: PANIC DISORDER
     Route: 048
     Dates: start: 20070508, end: 20070612
  6. DEPAS [Concomitant]
     Indication: PANIC DISORDER
     Dosage: .5MG PER DAY
     Route: 048
     Dates: start: 20070430, end: 20070612

REACTIONS (36)
  - ABNORMAL SENSATION IN EYE [None]
  - ALTERED STATE OF CONSCIOUSNESS [None]
  - ANAPHYLACTIC REACTION [None]
  - ASPARTATE AMINOTRANSFERASE INCREASED [None]
  - BLOOD ALBUMIN DECREASED [None]
  - BLOOD ALKALINE PHOSPHATASE INCREASED [None]
  - BLOOD LACTATE DEHYDROGENASE INCREASED [None]
  - BLOOD PRESSURE DECREASED [None]
  - BRADYCARDIA [None]
  - C-REACTIVE PROTEIN INCREASED [None]
  - CONDITION AGGRAVATED [None]
  - DIABETES MELLITUS [None]
  - DRUG HYPERSENSITIVITY [None]
  - FACE OEDEMA [None]
  - GAMMA-GLUTAMYLTRANSFERASE INCREASED [None]
  - GENERALISED ERYTHEMA [None]
  - HYPOPROTEINAEMIA [None]
  - IMMUNOSUPPRESSION [None]
  - LIP OEDEMA [None]
  - LIVER DISORDER [None]
  - MALAISE [None]
  - MUCOSAL EROSION [None]
  - NECROSIS [None]
  - OEDEMA MOUTH [None]
  - OROPHARYNGEAL PAIN [None]
  - PHARYNGEAL OEDEMA [None]
  - PROTEIN TOTAL DECREASED [None]
  - PRURITUS GENERALISED [None]
  - PYREXIA [None]
  - RASH [None]
  - RESPIRATORY DISORDER [None]
  - SEPSIS [None]
  - SEPTIC SHOCK [None]
  - URTICARIA [None]
  - VENTRICULAR TACHYCARDIA [None]
  - WHITE BLOOD CELL COUNT INCREASED [None]
